FAERS Safety Report 15594520 (Version 2)
Quarter: 2018Q4

REPORT INFORMATION
  Report Type: Spontaneous
  Country: US (occurrence: US)
  Receive Date: 20181106
  Receipt Date: 20181220
  Transmission Date: 20190205
  Serious: No
  Sender: FDA-Public Use
  Company Number: US-009507513-1811USA002171

PATIENT
  Age: 25 Year
  Sex: Female

DRUGS (1)
  1. NEXPLANON [Suspect]
     Active Substance: ETONOGESTREL
     Dosage: ROD, IN LEFT ARM
     Route: 059
     Dates: start: 20181030, end: 20181030

REACTIONS (4)
  - Product quality issue [Unknown]
  - No adverse event [Unknown]
  - Device difficult to use [Recovered/Resolved with Sequelae]
  - Complication of device insertion [Recovered/Resolved with Sequelae]

NARRATIVE: CASE EVENT DATE: 20181030
